FAERS Safety Report 14848783 (Version 1)
Quarter: 2018Q2

REPORT INFORMATION
  Report Type: Spontaneous
  Country: US (occurrence: US)
  Receive Date: 20180504
  Receipt Date: 20180504
  Transmission Date: 20180711
  Serious: No
  Sender: FDA-Public Use
  Company Number: US-TEVA-2018-US-887514

PATIENT
  Age: 75 Year
  Sex: Female
  Weight: 49 kg

DRUGS (3)
  1. PROAIR RESPICLICK [Suspect]
     Active Substance: ALBUTEROL SULFATE
     Indication: CHRONIC OBSTRUCTIVE PULMONARY DISEASE
     Route: 065
     Dates: start: 201802
  2. BREO ELLIPTA [Concomitant]
     Active Substance: FLUTICASONE FUROATE\VILANTEROL TRIFENATATE
     Route: 065
  3. ALBUTEROL NEBULIZING [Concomitant]
     Route: 065

REACTIONS (6)
  - Dermatitis diaper [Not Recovered/Not Resolved]
  - Dry mouth [Unknown]
  - Drug prescribing error [Unknown]
  - Urinary tract infection [Unknown]
  - Lip dry [Unknown]
  - Vulvovaginal dryness [Unknown]

NARRATIVE: CASE EVENT DATE: 201802
